FAERS Safety Report 10026906 (Version 1)
Quarter: 2014Q1

REPORT INFORMATION
  Report Type: Report from Study
  Country: IE (occurrence: IE)
  Receive Date: 20140321
  Receipt Date: 20140321
  Transmission Date: 20141002
  Serious: Yes (Hospitalization)
  Sender: FDA-Public Use
  Company Number: IE-JNJFOC-20140310963

PATIENT
  Sex: Female

DRUGS (8)
  1. SIMPONI [Suspect]
     Indication: PSORIATIC ARTHROPATHY
     Route: 058
     Dates: start: 20131014
  2. DALMANE [Concomitant]
     Route: 065
  3. PROTIUM [Concomitant]
     Route: 065
  4. LIPITOR [Concomitant]
     Route: 065
  5. DOSULEPIN [Concomitant]
     Route: 065
  6. FOLIC ACID [Concomitant]
     Route: 065
  7. METHOTREXATE [Concomitant]
     Route: 065
  8. PANADOL [Concomitant]
     Route: 065

REACTIONS (2)
  - Pain [Unknown]
  - Lower respiratory tract infection [Unknown]
